FAERS Safety Report 20320777 (Version 1)
Quarter: 2022Q1

REPORT INFORMATION
  Report Type: Spontaneous
  Country: None (occurrence: US)
  Receive Date: 20220111
  Receipt Date: 20220111
  Transmission Date: 20220423
  Serious: No
  Sender: FDA-Public Use
  Company Number: US-Ajanta Pharma USA Inc.-2123791

PATIENT
  Age: 72 Year
  Sex: Female

DRUGS (1)
  1. CHOLESTYRAMINE [Suspect]
     Active Substance: CHOLESTYRAMINE
     Indication: Product used for unknown indication

REACTIONS (4)
  - Product taste abnormal [Unknown]
  - Product solubility abnormal [Unknown]
  - Product physical consistency issue [Unknown]
  - Product packaging difficult to open [Unknown]
